FAERS Safety Report 7817537-5 (Version None)
Quarter: 2011Q4

REPORT INFORMATION
  Report Type: 
  Country: None (occurrence: None)
  Receive Date: 20111017
  Receipt Date: 20111006
  Transmission Date: 20120403
  Serious: Yes (Death, Hospitalization)
  Sender: FDA-Public Use
  Company Number: DE-BAXTER-2011BH031418

PATIENT

DRUGS (1)
  1. CEPROTIN [Suspect]
     Indication: GASTROENTERITIS ESCHERICHIA COLI
     Route: 065
     Dates: start: 20110101

REACTIONS (1)
  - DEATH [None]
